FAERS Safety Report 4527790-1 (Version None)
Quarter: 2004Q4

REPORT INFORMATION
  Report Type: 
  Country: None (occurrence: None)
  Receive Date: 20041130
  Receipt Date: 20041020
  Transmission Date: 20050328
  Serious: No
  Sender: FDA-Public Use
  Company Number: WAES 0410USA03209

PATIENT
  Sex: Female

DRUGS (2)
  1. ZETIA [Suspect]
     Dosage: 10 MG/DAILY/PO
     Route: 048
  2. NORDETTE-21 [Concomitant]

REACTIONS (2)
  - PERIPHERAL COLDNESS [None]
  - SKIN DISCOLOURATION [None]
